FAERS Safety Report 4454721-5 (Version None)
Quarter: 2004Q3

REPORT INFORMATION
  Report Type: 
  Country: None (occurrence: None)
  Receive Date: 20040920
  Receipt Date: 20040920
  Transmission Date: 20050211
  Serious: Yes (Disabling)
  Sender: FDA-Public Use
  Company Number: None

PATIENT
  Age: 39 Year
  Sex: Female
  Weight: 71.6683 kg

DRUGS (5)
  1. LEVAQUIN [Suspect]
     Indication: SINUSITIS
     Dosage: ONE TAB DAILY ORAL
     Route: 048
     Dates: start: 19990101, end: 20011231
  2. TEQUIN [Suspect]
     Indication: SINUSITIS
     Dosage: 400MG DAILY ORAL
     Route: 048
     Dates: start: 20040628, end: 20040630
  3. VICODIN [Concomitant]
  4. PRILOSEC [Concomitant]
  5. PREDNISONE [Concomitant]

REACTIONS (8)
  - BURNING SENSATION [None]
  - IMPAIRED DRIVING ABILITY [None]
  - IMPAIRED WORK ABILITY [None]
  - NEUROPATHY PERIPHERAL [None]
  - PAIN IN EXTREMITY [None]
  - PARAESTHESIA [None]
  - SENSORY DISTURBANCE [None]
  - TENDON DISORDER [None]
